FAERS Safety Report 9155900 (Version 2)
Quarter: 2013Q2

REPORT INFORMATION
  Report Type: Spontaneous
  Country: AR (occurrence: AR)
  Receive Date: 20130311
  Receipt Date: 20130503
  Transmission Date: 20140414
  Serious: Yes (Hospitalization)
  Sender: FDA-Public Use
  Company Number: PHHY2013AR022412

PATIENT
  Age: 35 Year
  Sex: Male

DRUGS (4)
  1. ISONIAZID [Suspect]
     Indication: PULMONARY TUBERCULOSIS
  2. ETHAMBUTOL [Suspect]
     Indication: PULMONARY TUBERCULOSIS
  3. RIFAMPICIN [Suspect]
     Indication: PULMONARY TUBERCULOSIS
  4. PYRAZINAMIDE SANDOZ [Suspect]
     Indication: PULMONARY TUBERCULOSIS

REACTIONS (5)
  - Drug reaction with eosinophilia and systemic symptoms [Recovering/Resolving]
  - Hepatitis toxic [Recovering/Resolving]
  - Rash erythematous [Recovering/Resolving]
  - Face oedema [Recovering/Resolving]
  - Erythema multiforme [Recovering/Resolving]
